FAERS Safety Report 16591580 (Version 1)
Quarter: 2019Q3

REPORT INFORMATION
  Report Type: Spontaneous
  Country: US (occurrence: US)
  Receive Date: 20190604
  Receipt Date: 20190604
  Transmission Date: 20191004
  Serious: Yes (Disabling, Other)
  Sender: FDA-Public Use
  Company Number: None

PATIENT
  Age: 78 Year
  Sex: Female
  Weight: 57.61 kg

DRUGS (7)
  1. MULTI VITAMIN [Concomitant]
     Active Substance: VITAMINS
  2. LISINOPRIL. [Concomitant]
     Active Substance: LISINOPRIL
  3. LATANAPROST DROPS [Concomitant]
  4. FISH OIL [Concomitant]
     Active Substance: FISH OIL
  5. METHSCOPOLAMINE BROMIDE 2.5MG TAB [Suspect]
     Active Substance: METHSCOPOLAMINE BROMIDE
     Indication: IRRITABLE BOWEL SYNDROME
     Dosage: ?          QUANTITY:3 TOT - TOTAL;?
     Route: 048
  6. FOLIC ACID. [Concomitant]
     Active Substance: FOLIC ACID
  7. VITAMIN D [Concomitant]
     Active Substance: VITAMIN D NOS

REACTIONS (7)
  - Insomnia [None]
  - Gastrooesophageal reflux disease [None]
  - Dysphagia [None]
  - Pharyngeal disorder [None]
  - Fear [None]
  - Product substitution issue [None]
  - Chest discomfort [None]

NARRATIVE: CASE EVENT DATE: 20190101
